FAERS Safety Report 12988211 (Version 1)
Quarter: 2016Q4

REPORT INFORMATION
  Report Type: Report from Study
  Country: US (occurrence: US)
  Receive Date: 20161130
  Receipt Date: 20161130
  Transmission Date: 20170207
  Serious: Yes (Hospitalization, Other)
  Sender: FDA-Public Use
  Company Number: US-SAOL THERAPEUTICS-2016SAO01102

PATIENT
  Age: 57 Year
  Sex: Male

DRUGS (1)
  1. LIORESAL [Suspect]
     Active Substance: BACLOFEN
     Route: 037

REACTIONS (11)
  - Muscle spasms [Unknown]
  - Pulmonary embolism [Unknown]
  - Pain in extremity [Unknown]
  - Muscle spasticity [Unknown]
  - Abdominal pain [Unknown]
  - Fall [Unknown]
  - Asthenia [Unknown]
  - Chest pain [Unknown]
  - Urinary tract infection [Unknown]
  - Lethargy [Unknown]
  - Pain [Unknown]

NARRATIVE: CASE EVENT DATE: 201307
